FAERS Safety Report 14302549 (Version 1)
Quarter: 2017Q4

REPORT INFORMATION
  Report Type: Report from Study
  Country: CA (occurrence: CA)
  Receive Date: 20171219
  Receipt Date: 20171219
  Transmission Date: 20180321
  Serious: Yes (Hospitalization)
  Sender: FDA-Public Use
  Company Number: PHHY2017CA183277

PATIENT
  Sex: Male

DRUGS (1)
  1. SANDOSTATIN LAR DEPOT [Suspect]
     Active Substance: OCTREOTIDE ACETATE
     Indication: ACROMEGALY
     Dosage: 30 MG, QMO (EVERY 4 WEEKS)
     Route: 030
     Dates: start: 20050304

REACTIONS (6)
  - Dizziness [Unknown]
  - Gallbladder disorder [Unknown]
  - Limb discomfort [Unknown]
  - Asthenia [Recovered/Resolved]
  - Chest pain [Unknown]
  - Feeling abnormal [Recovered/Resolved]
